FAERS Safety Report 18080118 (Version 1)
Quarter: 2020Q3

REPORT INFORMATION
  Report Type: Report from Study
  Country: NL (occurrence: NL)
  Receive Date: 20200728
  Receipt Date: 20200728
  Transmission Date: 20201103
  Serious: Yes (Congenital Anomaly, Other)
  Sender: FDA-Public Use
  Company Number: NL-ASTRAZENECA-2020SE91393

PATIENT

DRUGS (6)
  1. OPIPRAMOL [Suspect]
     Active Substance: OPIPRAMOL
     Route: 064
  2. PANTOPRAZOLE [Suspect]
     Active Substance: PANTOPRAZOLE
     Route: 064
  3. QUETIAPINE. [Suspect]
     Active Substance: QUETIAPINE
     Route: 064
  4. SIMVASTATIN. [Suspect]
     Active Substance: SIMVASTATIN
     Route: 064
  5. CLOZAPINE. [Suspect]
     Active Substance: CLOZAPINE
     Route: 064
  6. ZIPRASIDONE. [Suspect]
     Active Substance: ZIPRASIDONE
     Route: 064

REACTIONS (2)
  - Abnormal palmar/plantar creases [Unknown]
  - Dysmorphism [Unknown]
